FAERS Safety Report 9888157 (Version 2)
Quarter: 2014Q1

REPORT INFORMATION
  Report Type: Spontaneous
  Country: US (occurrence: US)
  Receive Date: 20140211
  Receipt Date: 20140304
  Transmission Date: 20141002
  Serious: No
  Sender: FDA-Public Use
  Company Number: US-009507513-1402USA004973

PATIENT
  Age: 61 Year
  Sex: Female
  Weight: 104.31 kg

DRUGS (1)
  1. OXYTROL FOR WOMEN [Suspect]
     Indication: MICTURITION URGENCY
     Dosage: UNK, UNKNOWN
     Route: 062
     Dates: start: 201312, end: 201401

REACTIONS (3)
  - Pruritus [Unknown]
  - Erythema [Unknown]
  - Product packaging issue [Unknown]
